FAERS Safety Report 9206704 (Version 2)
Quarter: 2013Q4

REPORT INFORMATION
  Report Type: Spontaneous
  Country: US (occurrence: US)
  Receive Date: 20130403
  Receipt Date: 20131120
  Transmission Date: 20140711
  Serious: Yes (Other)
  Sender: FDA-Public Use
  Company Number: US-BAYER-2013-041123

PATIENT
  Age: 25 Year
  Sex: Female

DRUGS (7)
  1. YAZ [Suspect]
     Dosage: UNK
     Dates: start: 2009, end: 2010
  2. YASMIN [Suspect]
     Dosage: UNK
     Dates: start: 2009, end: 2010
  3. OCELLA [Suspect]
     Dosage: UNK
     Dates: start: 2009, end: 2010
  4. TREXIMET [Concomitant]
     Indication: MIGRAINE
     Dosage: 85-500 MG, LONG TERM USE
  5. METOPROLOL [Concomitant]
     Dosage: 12.5 MG, UNK
  6. ADDERALL [Concomitant]
     Dosage: UNK
  7. DEPO PROVERA [Concomitant]
     Dosage: UNK

REACTIONS (9)
  - Cholelithiasis [None]
  - Abdominal pain [None]
  - Injury [None]
  - General physical health deterioration [None]
  - Emotional distress [None]
  - Anxiety [None]
  - Pain [None]
  - Anhedonia [None]
  - Fear [None]
